FAERS Safety Report 25517144 (Version 1)
Quarter: 2025Q3

REPORT INFORMATION
  Report Type: Spontaneous
  Country: US (occurrence: US)
  Receive Date: 20250704
  Receipt Date: 20250704
  Transmission Date: 20251020
  Serious: No
  Sender: INNOGENIX, LLC
  Company Number: US-Innogenix, LLC-2179927

PATIENT
  Sex: Female

DRUGS (4)
  1. BACLOFEN [Suspect]
     Active Substance: BACLOFEN
     Indication: Mobility decreased
  2. BACLOFEN [Suspect]
     Active Substance: BACLOFEN
     Indication: Muscle contracture
  3. PHENOL [Suspect]
     Active Substance: PHENOL
  4. DYSPORT [Suspect]
     Active Substance: ABOBOTULINUMTOXINA

REACTIONS (1)
  - Therapy partial responder [Unknown]
